FAERS Safety Report 7352944-9 (Version None)
Quarter: 2011Q1

REPORT INFORMATION
  Report Type: 
  Country: None (occurrence: None)
  Receive Date: 20110315
  Receipt Date: 20110307
  Transmission Date: 20110831
  Serious: Yes (Hospitalization)
  Sender: FDA-Public Use
  Company Number: FR-ROCHE-764622

PATIENT
  Sex: Female
  Weight: 1.6 kg

DRUGS (3)
  1. TAMIFLU [Suspect]
     Dosage: 75 MG AS CURATIVE TREATMENT AT 3 TABLETS DAILY FOR 3 DAYS
     Route: 064
     Dates: start: 20091119, end: 20091121
  2. TAMIFLU [Suspect]
     Dosage: 1TABLET DAILY FOR 2 DAYS, 75 MG
     Route: 064
     Dates: start: 20091122, end: 20091123
  3. AMOXICILLIN [Suspect]
     Indication: BRONCHITIS
     Route: 064
     Dates: start: 20091119, end: 20091123

REACTIONS (3)
  - HYPOTHERMIA NEONATAL [None]
  - PREMATURE LABOUR [None]
  - NEONATAL RESPIRATORY DISTRESS SYNDROME [None]
